FAERS Safety Report 6871821-0 (Version None)
Quarter: 2010Q3

REPORT INFORMATION
  Report Type: 
  Country: None (occurrence: None)
  Receive Date: 20100723
  Receipt Date: 20100715
  Transmission Date: 20110219
  Serious: Yes (Hospitalization)
  Sender: FDA-Public Use
  Company Number: B0666616A

PATIENT
  Age: 72 Year
  Sex: Male
  Weight: 85 kg

DRUGS (5)
  1. AMOXICILLIN [Suspect]
     Indication: NAIL INFECTION
     Dates: start: 20090529, end: 20090603
  2. ERLOTINIB [Suspect]
     Indication: NON-SMALL CELL LUNG CANCER
     Dosage: 150MG PER DAY
     Route: 048
     Dates: start: 20090513, end: 20090606
  3. ACTRAPID [Concomitant]
  4. CLOPIDOGREL [Concomitant]
     Indication: FAT EMBOLISM
     Dosage: 300MG PER DAY
  5. OMEPRAZOLE [Concomitant]
     Indication: PROPHYLAXIS
     Dosage: 20MG PER DAY
     Route: 065

REACTIONS (1)
  - GASTROENTERITIS [None]
